FAERS Safety Report 7493585-2 (Version None)
Quarter: 2011Q2

REPORT INFORMATION
  Report Type: 
  Country: None (occurrence: None)
  Receive Date: 20110520
  Receipt Date: 20110506
  Transmission Date: 20111010
  Serious: Yes (Hospitalization, Other)
  Sender: FDA-Public Use
  Company Number: PHHY2011DE38888

PATIENT
  Sex: Female
  Weight: 122 kg

DRUGS (19)
  1. DIOVAN [Suspect]
     Dosage: 0.5 DF, 80 MG
  2. BISOPROLOL FUMARATE [Concomitant]
     Dosage: 0.5 DF, BID
  3. TORSEMIDE [Concomitant]
     Dosage: 1 DF (1 IN MORNING)
     Dates: start: 20110215
  4. ACTOPLUS MET [Concomitant]
     Dosage: 1 DF, TID (1 IN MORNING, MID DAY AND AFTERNOON)
  5. CAPVAL [Concomitant]
     Dosage: 30 ML (30 DROPS AT MIGHT)
     Dates: start: 20110222
  6. CIPROFLOXACIN [Concomitant]
     Dosage: 1 DF, BID  (1 IN MORNING AND 1 IN AFTERNOON)
     Dates: start: 20110209
  7. GALVUS [Concomitant]
     Dosage: 1 DF, BID  (1 IN MORNING AND 1 IN AFTERNOON)
     Dates: start: 20101108, end: 20110124
  8. AMITRIPTYLINE HCL [Concomitant]
     Dosage: 1 DF (1 IN MID DAY)
  9. ALLOPURINOL [Concomitant]
     Dosage: 0.5 DF (1 IN AFTERNOON)
  10. NOVOPULMON [Concomitant]
     Dosage: 1 DF, BID (1 IN MORNING AND 1 IN AFTERNOON)
  11. BISOPROLOL FUMARATE [Concomitant]
     Dosage: 1 DF, BID  (1 IN MORNING AND 1 IN AFTERNOON)
     Dates: start: 20110215
  12. SPIRONOLACTONE ^STADA^ [Concomitant]
     Dosage: 1 DF (1 IN MORNING)
     Dates: start: 20110215
  13. OMEPRAZOLE [Concomitant]
     Dosage: 1 DF, BID  (1 IN MORNING AND 1 IN AFTERNOON)
     Dates: start: 20110125
  14. SIMVASTATIN [Concomitant]
     Dosage: 1 DF (1 IN MID DAY)
     Dates: start: 20110118
  15. DIOVAN [Suspect]
     Dosage: 160 MG/D
     Dates: start: 20050401
  16. FORMOTEROL FUMARATE [Concomitant]
     Dosage: 1 DF, BID  (1 IN MORNING AND 1 IN AFTERNOON)
  17. METFORMIN HCL [Concomitant]
     Dosage: 1 DF, BID  (1 IN MORNING AND 1 IN AFTERNOON)
  18. METFORMIN HYDROCHLORIDE [Concomitant]
     Dosage: 1 DF, BID  (1 IN MORNING AND 1 IN AFTERNOON)
     Dates: start: 20110125
  19. ASPIRIN [Concomitant]
     Dosage: 1 DF (1 IN MID DAY)

REACTIONS (26)
  - ATRIAL FIBRILLATION [None]
  - INFECTION [None]
  - THYROID NEOPLASM [None]
  - BLOOD GLUCOSE INCREASED [None]
  - REACTIVE PSYCHOSIS [None]
  - WRONG TECHNIQUE IN DRUG USAGE PROCESS [None]
  - ACUTE CORONARY SYNDROME [None]
  - SYNCOPE [None]
  - DIABETES MELLITUS INADEQUATE CONTROL [None]
  - OBESITY [None]
  - PRURITUS [None]
  - DYSPNOEA [None]
  - VENTRICULAR EXTRASYSTOLES [None]
  - FOOT FRACTURE [None]
  - RASH PUSTULAR [None]
  - RASH [None]
  - TACHYARRHYTHMIA [None]
  - UMBILICAL HERNIA [None]
  - CHRONIC OBSTRUCTIVE PULMONARY DISEASE [None]
  - CYSTITIS [None]
  - DEPRESSION [None]
  - ERYTHEMA [None]
  - SUPRAVENTRICULAR EXTRASYSTOLES [None]
  - REFLUX OESOPHAGITIS [None]
  - DERMATITIS DIAPER [None]
  - HYPERURICAEMIA [None]
